FAERS Safety Report 23657735 (Version 1)
Quarter: 2024Q1

REPORT INFORMATION
  Report Type: Spontaneous
  Country: US (occurrence: None)
  Receive Date: 20240320
  Receipt Date: 20240320
  Transmission Date: 20240410
  Serious: Yes (Life-Threatening, Hospitalization)
  Sender: FDA-Public Use
  Company Number: None

PATIENT
  Age: 57 Year
  Sex: Male
  Weight: 85.5 kg

DRUGS (1)
  1. TIANEPTINE [Suspect]
     Active Substance: TIANEPTINE
     Indication: Asthenia
     Dates: start: 20230708, end: 20230708

REACTIONS (5)
  - Dizziness [None]
  - Loss of consciousness [None]
  - Loss of consciousness [None]
  - Malaise [None]
  - Near death experience [None]

NARRATIVE: CASE EVENT DATE: 20230708
